FAERS Safety Report 15673481 (Version 2)
Quarter: 2019Q1

REPORT INFORMATION
  Report Type: Report from Study
  Country: JP (occurrence: JP)
  Receive Date: 20181129
  Receipt Date: 20190123
  Transmission Date: 20190417
  Serious: Yes (Hospitalization)
  Sender: FDA-Public Use
  Company Number: JP-EISAI MEDICAL RESEARCH-EC-2018-048483

PATIENT
  Age: 71 Year
  Sex: Male
  Weight: 64 kg

DRUGS (7)
  1. LENVIMA [Suspect]
     Active Substance: LENVATINIB
     Route: 048
     Dates: start: 20181003
  2. RENIVACE [Concomitant]
     Active Substance: ENALAPRIL
     Dates: start: 20180803
  3. UREPEARL [Concomitant]
     Active Substance: UREA
     Dates: start: 20180731
  4. AZILVA [Concomitant]
     Active Substance: AZILSARTAN KAMEDOXOMIL
     Dates: start: 20180830
  5. LENVIMA [Suspect]
     Active Substance: LENVATINIB
     Indication: HEPATOCELLULAR CARCINOMA
     Route: 048
     Dates: start: 20180731, end: 20180816
  6. LENVIMA [Suspect]
     Active Substance: LENVATINIB
     Route: 048
     Dates: start: 20180817, end: 20180903
  7. LENVIMA [Suspect]
     Active Substance: LENVATINIB
     Route: 048
     Dates: start: 20180910, end: 20181002

REACTIONS (1)
  - Enterocolitis [Recovered/Resolved]

NARRATIVE: CASE EVENT DATE: 20180904
